FAERS Safety Report 10559631 (Version 1)
Quarter: 2014Q4

REPORT INFORMATION
  Report Type: Spontaneous
  Country: US (occurrence: None)
  Receive Date: 20141030
  Receipt Date: 20141030
  Transmission Date: 20150529
  Serious: Yes (Other)
  Sender: FDA-Public Use
  Company Number: 2014-US-008079

PATIENT
  Age: 53 Year
  Sex: Female

DRUGS (15)
  1. XYREM [Suspect]
     Active Substance: SODIUM OXYBATE
     Indication: NARCOLEPSY
     Route: 048
     Dates: start: 201307, end: 2013
  2. XANAX [Concomitant]
     Active Substance: ALPRAZOLAM
  3. NUVIGIL [Concomitant]
     Active Substance: ARMODAFINIL
  4. FUROSEMIDE (FUROSEMIDE) [Concomitant]
     Active Substance: FUROSEMIDE
  5. ESTRADIOL (ESTRADIOL) [Concomitant]
  6. VIIBRYD [Concomitant]
     Active Substance: VILAZODONE HYDROCHLORIDE
  7. LEVOTHYROXINE (LEVOTHYROXINE) [Concomitant]
     Active Substance: LEVOTHYROXINE
  8. CALTRATE WITH VITAMIN D (CALCIUM CARBONATE, COLECALCIFEROL) [Concomitant]
  9. GABAPENTIN (GABAPENTIN) [Concomitant]
     Active Substance: GABAPENTIN
  10. LOVASTATIN (LOVASTATIN) [Concomitant]
     Active Substance: LOVASTATIN
  11. CYMBALTA [Concomitant]
     Active Substance: DULOXETINE HYDROCHLORIDE
  12. HYDROCHLOROTHIAZIDE (HYDROCHLOROTHIAZIDE) [Concomitant]
     Active Substance: HYDROCHLOROTHIAZIDE
  13. ROPINIROLE (ROPINIROLE) [Concomitant]
     Active Substance: ROPINIROLE
  14. NORCO (HYDROCODONE BITARTRATE, PARACETAMOL) [Concomitant]
  15. XYREM [Suspect]
     Active Substance: SODIUM OXYBATE
     Indication: CATAPLEXY
     Route: 048
     Dates: start: 201307, end: 2013

REACTIONS (2)
  - Back pain [None]
  - Bronchitis [None]

NARRATIVE: CASE EVENT DATE: 20140616
